FAERS Safety Report 4790496-8 (Version None)
Quarter: 2005Q4

REPORT INFORMATION
  Report Type: 
  Country: None (occurrence: None)
  Receive Date: 20051005
  Receipt Date: 20020827
  Transmission Date: 20060501
  Serious: No
  Sender: FDA-Public Use
  Company Number: HQWYE707328SEP05

PATIENT
  Sex: Female

DRUGS (1)
  1. MINOCIN [Suspect]

REACTIONS (1)
  - SCLERODERMA [None]
